FAERS Safety Report 15848335 (Version 3)
Quarter: 2020Q1

REPORT INFORMATION
  Report Type: Spontaneous
  Country: US (occurrence: US)
  Receive Date: 20190121
  Receipt Date: 20200212
  Transmission Date: 20200409
  Serious: No
  Sender: FDA-Public Use
  Company Number: US-PFIZER INC-2019026263

PATIENT
  Age: 47 Year
  Sex: Female
  Weight: 68 kg

DRUGS (2)
  1. SERTRALINE HCL [Suspect]
     Active Substance: SERTRALINE HYDROCHLORIDE
     Indication: PERINATAL DEPRESSION
  2. SERTRALINE HCL [Suspect]
     Active Substance: SERTRALINE HYDROCHLORIDE
     Indication: SEIZURE
     Dosage: 100 MG, 1X/DAY
     Dates: start: 201504

REACTIONS (3)
  - Off label use [Unknown]
  - Loss of personal independence in daily activities [Unknown]
  - Drug ineffective for unapproved indication [Unknown]
